FAERS Safety Report 15562774 (Version 2)
Quarter: 2019Q2

REPORT INFORMATION
  Report Type: Spontaneous
  Country: US (occurrence: US)
  Receive Date: 20181029
  Receipt Date: 20190410
  Transmission Date: 20190711
  Serious: Yes (Other)
  Sender: FDA-Public Use
  Company Number: US-MYLANLABS-2018M1080835

PATIENT
  Age: 6 Decade
  Sex: Male

DRUGS (14)
  1. LAMOTRIGINE. [Suspect]
     Active Substance: LAMOTRIGINE
     Indication: FOCAL DYSCOGNITIVE SEIZURES
     Dosage: 100 MG, TID
     Route: 065
  2. ESCITALOPRAM [Suspect]
     Active Substance: ESCITALOPRAM OXALATE
     Indication: PANIC DISORDER
  3. MIRTAZAPINE. [Suspect]
     Active Substance: MIRTAZAPINE
     Indication: PANIC DISORDER
  4. ESCITALOPRAM [Suspect]
     Active Substance: ESCITALOPRAM OXALATE
     Indication: MAJOR DEPRESSION
     Dosage: 20 MG, UNK
     Route: 065
  5. ALPRAZOLAM. [Suspect]
     Active Substance: ALPRAZOLAM
     Indication: MAJOR DEPRESSION
     Dosage: 1 MG/TID WHEN NECESSARY
     Route: 065
  6. ENALAPRIL [Suspect]
     Active Substance: ENALAPRIL
     Indication: HYPERTENSION
     Dosage: 20 MG, QD/EVERY MORNING
     Route: 065
  7. LAMOTRIGINE. [Suspect]
     Active Substance: LAMOTRIGINE
     Indication: EPILEPSY
  8. ESCITALOPRAM [Suspect]
     Active Substance: ESCITALOPRAM OXALATE
     Indication: POST-TRAUMATIC STRESS DISORDER
  9. MIRTAZAPINE. [Suspect]
     Active Substance: MIRTAZAPINE
     Indication: MAJOR DEPRESSION
     Dosage: 22.5 MG, QD/EVERY BEDTIME
     Route: 065
  10. MIRTAZAPINE. [Suspect]
     Active Substance: MIRTAZAPINE
     Indication: POST-TRAUMATIC STRESS DISORDER
  11. ALPRAZOLAM. [Suspect]
     Active Substance: ALPRAZOLAM
     Indication: PANIC DISORDER
  12. ALPRAZOLAM. [Suspect]
     Active Substance: ALPRAZOLAM
     Indication: POST-TRAUMATIC STRESS DISORDER
  13. LANSOPRAZOLE. [Suspect]
     Active Substance: LANSOPRAZOLE
     Indication: GASTROOESOPHAGEAL REFLUX DISEASE
     Dosage: 30 MG, QD/EVERY MORNING
     Route: 065
  14. LAMOTRIGINE. [Suspect]
     Active Substance: LAMOTRIGINE
     Indication: SEIZURE

REACTIONS (4)
  - Ejaculation failure [Not Recovered/Not Resolved]
  - Erectile dysfunction [Not Recovered/Not Resolved]
  - Loss of libido [Not Recovered/Not Resolved]
  - Anorgasmia [Not Recovered/Not Resolved]
